FAERS Safety Report 7668406-5 (Version None)
Quarter: 2011Q3

REPORT INFORMATION
  Report Type: 
  Country: None (occurrence: None)
  Receive Date: 20110808
  Receipt Date: 20110725
  Transmission Date: 20111222
  Serious: Yes (Hospitalization)
  Sender: FDA-Public Use
  Company Number: US-ELI_LILLY_AND_COMPANY-US201108000271

PATIENT
  Sex: Female

DRUGS (10)
  1. VITAMIN D [Concomitant]
  2. CALCIUM ACETATE [Concomitant]
  3. MULTI-VITAMIN [Concomitant]
  4. FORTEO [Suspect]
     Indication: OSTEOPOROSIS
     Dosage: 20 UG, QD
     Route: 065
     Dates: start: 20110117, end: 20110206
  5. FORTEO [Suspect]
     Dosage: 20 UG, QD
     Route: 065
     Dates: start: 20110221
  6. PRAVASTATIN [Concomitant]
  7. ASPIRIN [Concomitant]
  8. GLUCOSAMINE CHONDROITIN [Concomitant]
  9. OMEPRAZOLE [Concomitant]
  10. FISH OIL [Concomitant]

REACTIONS (1)
  - SURGICAL FAILURE [None]
